FAERS Safety Report 9680758 (Version 1)
Quarter: 2013Q4

REPORT INFORMATION
  Report Type: Spontaneous
  Country: US (occurrence: None)
  Receive Date: 20131108
  Receipt Date: 20131108
  Transmission Date: 20140711
  Serious: Yes (Life-Threatening, Hospitalization)
  Sender: FDA-Public Use
  Company Number: None

PATIENT
  Age: 89 Year
  Sex: Female
  Weight: 66.68 kg

DRUGS (1)
  1. XARELTO [Suspect]
     Indication: ATRIAL FIBRILLATION
     Dates: start: 20130826, end: 20130903

REACTIONS (7)
  - Oral disorder [None]
  - Skin lesion [None]
  - Contusion [None]
  - Contusion [None]
  - Drug hypersensitivity [None]
  - Loss of consciousness [None]
  - Confusional state [None]
